FAERS Safety Report 13180120 (Version 1)
Quarter: 2017Q1

REPORT INFORMATION
  Report Type: Other
  Country: SA (occurrence: SA)
  Receive Date: 20170202
  Receipt Date: 20170202
  Transmission Date: 20170428
  Serious: No
  Sender: FDA-Public Use
  Company Number: SA-LUPIN PHARMACEUTICALS INC.-2016-03556

PATIENT
  Age: 28 Year
  Sex: Female

DRUGS (1)
  1. ESCITALOPRAM [Suspect]
     Active Substance: ESCITALOPRAM OXALATE
     Indication: MAJOR DEPRESSION
     Dosage: UP TO 10 MG
     Route: 065

REACTIONS (2)
  - Gastrointestinal disorder [Unknown]
  - Alopecia [Recovered/Resolved]
